FAERS Safety Report 20759139 (Version 1)
Quarter: 2022Q2

REPORT INFORMATION
  Report Type: Spontaneous
  Country: US (occurrence: US)
  Receive Date: 20220427
  Receipt Date: 20220427
  Transmission Date: 20220721
  Serious: No
  Sender: FDA-Public Use
  Company Number: US-BioHaven Pharmaceuticals-2021BHV003213

PATIENT
  Age: 48 Year
  Sex: Female

DRUGS (1)
  1. NURTEC ODT [Suspect]
     Active Substance: RIMEGEPANT SULFATE
     Indication: Product used for unknown indication
     Dosage: SHE ONLY TOOK IT ONE TIME, SHE MAY OR MAY NOT TAKE IT AGAIN BECAUSE SHE SAID HER DOCTOR WANTS HER ON
     Route: 065
     Dates: start: 202110, end: 202110

REACTIONS (1)
  - Nausea [Unknown]
